APPROVED DRUG PRODUCT: CLOBETASOL PROPIONATE
Active Ingredient: CLOBETASOL PROPIONATE
Strength: 0.05%
Dosage Form/Route: OINTMENT;TOPICAL
Application: A210551 | Product #001
Applicant: AMNEAL PHARMACEUTICALS LLC
Approved: Aug 21, 2018 | RLD: No | RS: No | Type: DISCN